FAERS Safety Report 9232819 (Version 1)
Quarter: 2013Q2

REPORT INFORMATION
  Report Type: Spontaneous
  Country: US (occurrence: US)
  Receive Date: 20130416
  Receipt Date: 20130416
  Transmission Date: 20140414
  Serious: Yes (Other)
  Sender: FDA-Public Use
  Company Number: US-AMGEN-USASP2013024778

PATIENT
  Sex: Female

DRUGS (1)
  1. PROLIA [Suspect]
     Indication: OSTEOPOROSIS POSTMENOPAUSAL
     Dosage: UNK
     Dates: start: 201209

REACTIONS (10)
  - Rash generalised [Recovered/Resolved]
  - Body temperature increased [Unknown]
  - Headache [Not Recovered/Not Resolved]
  - Facial pain [Unknown]
  - Cough [Unknown]
  - Ear pain [Unknown]
  - Myalgia [Unknown]
  - Bone pain [Unknown]
  - Insomnia [Unknown]
  - Erythema [Unknown]
